FAERS Safety Report 6096435-4 (Version None)
Quarter: 2009Q1

REPORT INFORMATION
  Report Type: 
  Country: None (occurrence: None)
  Receive Date: 20090227
  Receipt Date: 20090112
  Transmission Date: 20090719
  Serious: Yes (Life-Threatening, Hospitalization, Disabling)
  Sender: FDA-Public Use
  Company Number: A0760934A

PATIENT
  Age: 53 Year
  Sex: Male
  Weight: 132.3 kg

DRUGS (7)
  1. LAMICTAL [Suspect]
     Indication: BIPOLAR DISORDER
     Route: 048
     Dates: start: 20070101
  2. NORTRIPTYLINE HCL [Concomitant]
     Dosage: 75MG PER DAY
  3. MIRAPEX [Concomitant]
  4. NEURONTIN [Concomitant]
  5. METFORMIN [Concomitant]
     Dosage: 1G TWICE PER DAY
  6. HUMALOG [Concomitant]
  7. UNKNOWN MEDICATION [Concomitant]

REACTIONS (1)
  - BLOOD DISORDER [None]
